FAERS Safety Report 8817012 (Version 1)
Quarter: 2012Q4

REPORT INFORMATION
  Report Type: Spontaneous
  Country: US (occurrence: None)
  Receive Date: 20121002
  Receipt Date: 20121002
  Transmission Date: 20130627
  Serious: Yes (Other)
  Sender: FDA-Public Use
  Company Number: None

PATIENT
  Age: 11 Year
  Sex: Male
  Weight: 29.48 kg

DRUGS (4)
  1. SINGULAIR [Suspect]
     Indication: ALLERGIC RHINITIS
     Route: 048
  2. ZYRTEC [Concomitant]
  3. ALLEGRA [Concomitant]
  4. CLARITIN [Concomitant]

REACTIONS (1)
  - Drug ineffective [None]
